FAERS Safety Report 5463290-2 (Version None)
Quarter: 2007Q3

REPORT INFORMATION
  Report Type: 
  Country: None (occurrence: None)
  Receive Date: 20070920
  Receipt Date: 20070912
  Transmission Date: 20080115
  Serious: Yes (Other)
  Sender: FDA-Public Use
  Company Number: B0487591A

PATIENT
  Sex: Female

DRUGS (1)
  1. NIQUITIN CQ 2MG LOZENGE [Suspect]
     Route: 002

REACTIONS (3)
  - AXILLARY MASS [None]
  - DEPENDENCE [None]
  - GASTROINTESTINAL SOUNDS ABNORMAL [None]
